FAERS Safety Report 12495908 (Version 1)
Quarter: 2016Q2

REPORT INFORMATION
  Report Type: Spontaneous
  Country: US (occurrence: US)
  Receive Date: 20160624
  Receipt Date: 20160624
  Transmission Date: 20160815
  Serious: No
  Sender: FDA-Public Use
  Company Number: US-BAUSCH-BL-2016-011354

PATIENT
  Sex: Male

DRUGS (1)
  1. JUBLIA [Suspect]
     Active Substance: EFINACONAZOLE
     Indication: NAIL INFECTION
     Route: 061
     Dates: start: 2015

REACTIONS (4)
  - Liquid product physical issue [Unknown]
  - Incorrect drug administration duration [Unknown]
  - Drug effect incomplete [Unknown]
  - Nail disorder [Unknown]
